FAERS Safety Report 8936962 (Version 2)
Quarter: 2013Q1

REPORT INFORMATION
  Report Type: Spontaneous
  Country: IT (occurrence: IT)
  Receive Date: 20121130
  Receipt Date: 20130217
  Transmission Date: 20140127
  Serious: Yes (Hospitalization)
  Sender: FDA-Public Use
  Company Number: IT-BRISTOL-MYERS SQUIBB COMPANY-17144551

PATIENT
  Age: 82 Year
  Sex: Female

DRUGS (4)
  1. COUMADIN TABS 5 MG [Suspect]
     Indication: ATRIAL FIBRILLATION
     Route: 048
     Dates: start: 20120101, end: 20121113
  2. LASIX [Concomitant]
     Dosage: TABS
     Route: 048
  3. ADALAT-CRONO [Concomitant]
     Dosage: TABS
  4. QUINAPRIL HCL + HCTZ [Concomitant]
     Dosage: 1 DF = 20MG+12.5MG  TABS
     Route: 048

REACTIONS (3)
  - Syncope [Recovering/Resolving]
  - Craniocerebral injury [Recovering/Resolving]
  - Subarachnoid haemorrhage [Recovering/Resolving]
